FAERS Safety Report 10033895 (Version 1)
Quarter: 2014Q1

REPORT INFORMATION
  Report Type: Other
  Country: GB (occurrence: GB)
  Receive Date: 20140325
  Receipt Date: 20140325
  Transmission Date: 20141002
  Serious: Yes (Hospitalization)
  Sender: FDA-Public Use
  Company Number: GB-SUN PHARMACEUTICAL INDUSTRIES LTD-2014SUN00667

PATIENT
  Age: 52 Year
  Sex: Male

DRUGS (8)
  1. OXALIPLATIN [Suspect]
     Indication: PANCREATIC CARCINOMA
     Route: 065
  2. FLUOROURACIL [Suspect]
     Indication: PANCREATIC CARCINOMA
     Route: 065
  3. FOLINIC ACID [Suspect]
     Indication: PANCREATIC CARCINOMA
     Route: 065
  4. IRINOTECAN [Suspect]
     Indication: PANCREATIC CARCINOMA
     Route: 065
  5. GLICLAZIDE [Concomitant]
     Dosage: 40 MG, QD
     Route: 048
  6. METFORMIN [Concomitant]
     Dosage: 500 MG, BID
  7. PERINDOPRIL [Concomitant]
     Dosage: 8 MG, QD
     Route: 048
  8. TRAMADOL [Concomitant]

REACTIONS (1)
  - Pneumocystis jirovecii pneumonia [Not Recovered/Not Resolved]
